FAERS Safety Report 4370227-6 (Version None)
Quarter: 2004Q2

REPORT INFORMATION
  Report Type: 
  Country: None (occurrence: None)
  Receive Date: 20040603
  Receipt Date: 20040419
  Transmission Date: 20050107
  Serious: No
  Sender: FDA-Public Use
  Company Number: US-BRISTOL-MYERS SQUIBB COMPANY-12564043

PATIENT
  Age: 10 Year
  Sex: Male
  Weight: 57 kg

DRUGS (3)
  1. ABILIFY [Suspect]
     Indication: IMPULSIVE BEHAVIOUR
     Dosage: 6 TO 7 MONTHS
  2. ABILIFY [Suspect]
     Indication: AGITATION
     Dosage: 6 TO 7 MONTHS
  3. ABILIFY [Suspect]
     Indication: SELF ESTEEM DECREASED
     Dosage: 6 TO 7 MONTHS

REACTIONS (2)
  - BLOOD CHOLESTEROL INCREASED [None]
  - CHEST PAIN [None]
